FAERS Safety Report 7706454-7 (Version None)
Quarter: 2011Q3

REPORT INFORMATION
  Report Type: 
  Country: None (occurrence: None)
  Receive Date: 20110824
  Receipt Date: 20110726
  Transmission Date: 20111222
  Serious: Yes (Other)
  Sender: FDA-Public Use
  Company Number: US-SANOFI-AVENTIS-2011SA048668

PATIENT
  Age: 67 Year
  Sex: Female
  Weight: 77 kg

DRUGS (15)
  1. GLUCOPHAGE [Concomitant]
     Dates: start: 19910101
  2. SINGULAIR [Concomitant]
     Indication: ASTHMA
     Dates: start: 20030101
  3. LEVOXYL [Concomitant]
     Indication: HYPOTHYROIDISM
     Dates: start: 19920101
  4. CAPOTEN [Concomitant]
     Indication: BLOOD PRESSURE
     Dates: start: 20090101
  5. GENERAL NUTRIENTS [Concomitant]
  6. NIACIN [Concomitant]
  7. ASPIRIN [Concomitant]
  8. SOLOSTAR [Suspect]
     Dates: start: 20060829
  9. LANTUS [Suspect]
     Dosage: DOSE:25 UNIT(S)
     Route: 058
     Dates: start: 20060829
  10. TRAMADOL HCL [Concomitant]
     Indication: ARTHRITIS
     Dosage: 50 MG 2-3 TIMES A DAY
     Dates: start: 20050101
  11. ALBUTEROL SULFATE AUTOHALER [Concomitant]
     Route: 055
  12. GENERAL NUTRIENTS [Concomitant]
     Indication: PROPHYLAXIS URINARY TRACT INFECTION
  13. ASCORBIC ACID [Concomitant]
  14. ZOCOR [Concomitant]
     Indication: BONE DISORDER
     Dates: start: 20050101
  15. CALCIUM/VITAMIN D [Concomitant]

REACTIONS (4)
  - PRODUCT QUALITY ISSUE [None]
  - HYPERHIDROSIS [None]
  - PALPITATIONS [None]
  - HYPOGLYCAEMIA [None]
